FAERS Safety Report 22107760 (Version 2)
Quarter: 2023Q1

REPORT INFORMATION
  Report Type: Spontaneous
  Country: BG (occurrence: BG)
  Receive Date: 20230317
  Receipt Date: 20230330
  Transmission Date: 20230418
  Serious: Yes (Other)
  Sender: FDA-Public Use
  Company Number: BG-AMGEN-BGRSP2023041163

PATIENT
  Age: 72 Year
  Sex: Female

DRUGS (1)
  1. PROLIA [Suspect]
     Active Substance: DENOSUMAB
     Indication: Product used for unknown indication
     Dosage: UNK
     Route: 065
     Dates: start: 2013

REACTIONS (5)
  - Osteoarthritis [Unknown]
  - Post procedural oedema [Recovering/Resolving]
  - Procedural pain [Recovering/Resolving]
  - Arthralgia [Not Recovered/Not Resolved]
  - Oedema peripheral [Not Recovered/Not Resolved]
